FAERS Safety Report 12541113 (Version 1)
Quarter: 2016Q3

REPORT INFORMATION
  Report Type: Report from Study
  Country: US (occurrence: US)
  Receive Date: 20160708
  Receipt Date: 20160708
  Transmission Date: 20161109
  Serious: No
  Sender: FDA-Public Use
  Company Number: US-CELGENEUS-USA-2016070777

PATIENT
  Age: 64 Year
  Sex: Male

DRUGS (9)
  1. CLOBETASOL [Concomitant]
     Active Substance: CLOBETASOL
     Indication: PSORIASIS
     Route: 061
  2. BETAMETHASONE. [Concomitant]
     Active Substance: BETAMETHASONE
     Indication: PSORIASIS
     Route: 061
  3. TAZOREC [Concomitant]
     Indication: PSORIASIS
     Route: 061
  4. OTEZLA [Suspect]
     Active Substance: APREMILAST
     Indication: PSORIASIS
     Route: 048
  5. TACLONEX [Concomitant]
     Active Substance: BETAMETHASONE DIPROPIONATE\CALCIPOTRIENE\CALCIPOTRIENE HYDRATE
     Indication: PSORIASIS
     Route: 061
  6. VECTICAL [Concomitant]
     Active Substance: CALCITRIOL
     Indication: PSORIASIS
     Route: 061
  7. FLUOCINONIDE. [Concomitant]
     Active Substance: FLUOCINONIDE
     Indication: PSORIASIS
     Route: 061
  8. ZITHRANOL-RR [Concomitant]
     Active Substance: ANTHRALIN
     Indication: PSORIASIS
     Route: 061
  9. DOVONEX [Concomitant]
     Active Substance: CALCIPOTRIENE
     Indication: PSORIASIS
     Route: 061

REACTIONS (1)
  - Adverse drug reaction [Unknown]
